FAERS Safety Report 7263545-5 (Version None)
Quarter: 2011Q1

REPORT INFORMATION
  Report Type: 
  Country: None (occurrence: None)
  Receive Date: 20110130
  Receipt Date: 20101027
  Transmission Date: 20110831
  Serious: No
  Sender: FDA-Public Use
  Company Number: US-ABBOTT-10P-163-0682045-00

PATIENT
  Sex: Male
  Weight: 83.99 kg

DRUGS (5)
  1. HUMIRA [Suspect]
     Indication: ANKYLOSING SPONDYLITIS
     Route: 058
  2. PREDNISONE [Suspect]
     Indication: ANKYLOSING SPONDYLITIS
     Dosage: PUT BACK ONTO MEDICATION
     Route: 048
  3. PREDNISONE [Suspect]
     Dosage: WEANING DOWN OFF OF MEDICATION
     Route: 048
  4. TRAMADOL HCL [Concomitant]
     Indication: PAIN
  5. DICLOFENAC [Concomitant]
     Indication: PRODUCT USED FOR UNKNOWN INDICATION

REACTIONS (8)
  - RESPIRATORY TRACT CONGESTION [None]
  - COUGH [None]
  - NIGHT SWEATS [None]
  - INSOMNIA [None]
  - PAIN [None]
  - MUSCULOSKELETAL STIFFNESS [None]
  - MOBILITY DECREASED [None]
  - MYALGIA [None]
